FAERS Safety Report 9289500 (Version 1)
Quarter: 2013Q2

REPORT INFORMATION
  Report Type: Spontaneous
  Country: US (occurrence: US)
  Receive Date: 20130515
  Receipt Date: 20130515
  Transmission Date: 20140414
  Serious: Yes (Hospitalization, Other)
  Sender: FDA-Public Use
  Company Number: US-009507513-0912USA00709

PATIENT
  Sex: Female
  Weight: 87.54 kg

DRUGS (4)
  1. FOSAMAX [Suspect]
     Indication: OSTEOPENIA
     Dosage: 35 MG, QW
     Route: 048
     Dates: start: 20011119
  2. FOSAMAX [Suspect]
     Indication: OSTEOPOROSIS
     Dosage: 70 MG, QW
     Route: 048
     Dates: end: 2006
  3. THERAPY UNSPECIFIED [Concomitant]
     Indication: HORMONE THERAPY
     Dates: start: 1980
  4. CELEBREX [Concomitant]

REACTIONS (39)
  - Renal failure chronic [Not Recovered/Not Resolved]
  - Animal bite [Recovering/Resolving]
  - Cellulitis [Recovering/Resolving]
  - Anticoagulant therapy [Not Recovered/Not Resolved]
  - Osteonecrosis of jaw [Unknown]
  - Bone density decreased [Unknown]
  - Increased tendency to bruise [Unknown]
  - Memory impairment [Unknown]
  - Thyroid neoplasm [Unknown]
  - Tooth fracture [Unknown]
  - Tooth extraction [Unknown]
  - Hypoaesthesia oral [Unknown]
  - Tooth extraction [Unknown]
  - Hypertension [Not Recovered/Not Resolved]
  - Atrial fibrillation [Not Recovered/Not Resolved]
  - Hypertension [Unknown]
  - Myocardial ischaemia [Not Recovered/Not Resolved]
  - Mitral valve incompetence [Unknown]
  - Tricuspid valve incompetence [Unknown]
  - Chest pain [Unknown]
  - Hyperglycaemia [Unknown]
  - Type 2 diabetes mellitus [Not Recovered/Not Resolved]
  - Diabetes mellitus [Unknown]
  - Oral infection [Unknown]
  - Dental caries [Unknown]
  - Micturition urgency [Not Recovered/Not Resolved]
  - Gingival bleeding [Unknown]
  - Oral disorder [Unknown]
  - Tooth loss [Unknown]
  - Osteoarthritis [Not Recovered/Not Resolved]
  - Blood cholesterol increased [Unknown]
  - Gingival infection [Unknown]
  - Pruritus [Unknown]
  - Mouth ulceration [Unknown]
  - Diarrhoea [Unknown]
  - Malaise [Unknown]
  - Dizziness [Unknown]
  - Diarrhoea [Not Recovered/Not Resolved]
  - Back pain [Unknown]
